FAERS Safety Report 5734451-X (Version None)
Quarter: 2008Q2

REPORT INFORMATION
  Report Type: 
  Country: None (occurrence: None)
  Receive Date: 20080508
  Receipt Date: 20080508
  Transmission Date: 20081010
  Serious: No
  Sender: FDA-Public Use
  Company Number: None

PATIENT
  Age: 27 Year
  Sex: Male
  Weight: 145.151 kg

DRUGS (2)
  1. CREST PRO HEALTH MOUTH WASH CREST [Suspect]
     Indication: DENTAL DISORDER PROPHYLAXIS
     Dosage: 1/2 CAP AS DIRECTED DENTAL
     Route: 004
     Dates: start: 20080301, end: 20080315
  2. CREST PRO HEALTH TOOTHPASTE CREST [Suspect]
     Indication: DENTAL DISORDER PROPHYLAXIS
     Dosage: 1 BRUSH HEAD SIZE SERVING DENTAL
     Route: 004
     Dates: start: 20080301, end: 20080315

REACTIONS (4)
  - AGEUSIA [None]
  - GINGIVAL PAIN [None]
  - ORAL MUCOSAL EXFOLIATION [None]
  - PHARMACEUTICAL PRODUCT COMPLAINT [None]
